FAERS Safety Report 11588013 (Version 3)
Quarter: 2015Q4

REPORT INFORMATION
  Report Type: Report from Study
  Country: US (occurrence: US)
  Receive Date: 20151002
  Receipt Date: 20151119
  Transmission Date: 20160304
  Serious: Yes (Hospitalization)
  Sender: FDA-Public Use
  Company Number: US-AMGEN-USASL2015100217

PATIENT
  Age: 62 Year
  Sex: Female
  Weight: 92.97 kg

DRUGS (1)
  1. BLINCYTO [Suspect]
     Active Substance: BLINATUMOMAB
     Indication: ACUTE LYMPHOCYTIC LEUKAEMIA
     Dosage: 28 MG, Q4WK
     Route: 042
     Dates: start: 201507

REACTIONS (7)
  - Confusional state [Recovered/Resolved]
  - Muscle spasms [Recovered/Resolved]
  - Amnesia [Recovered/Resolved]
  - Chills [Recovered/Resolved]
  - Neuropathy peripheral [Recovered/Resolved]
  - Blood potassium decreased [Recovered/Resolved]
  - Headache [Recovered/Resolved]

NARRATIVE: CASE EVENT DATE: 201508
